FAERS Safety Report 5755296-0 (Version None)
Quarter: 2008Q2

REPORT INFORMATION
  Report Type: 
  Country: None (occurrence: None)
  Receive Date: 20080529
  Receipt Date: 20080529
  Transmission Date: 20081010
  Serious: No
  Sender: FDA-Public Use
  Company Number: None

PATIENT
  Age: 26 Year
  Sex: Female
  Weight: 63.5036 kg

DRUGS (1)
  1. NUVARING [Suspect]
     Indication: CONTRACEPTION
     Dosage: 1 RING
     Dates: start: 20080303, end: 20080530

REACTIONS (9)
  - DERMAL CYST [None]
  - FEAR [None]
  - HEADACHE [None]
  - MALAISE [None]
  - PAIN [None]
  - PRURITUS [None]
  - SKIN EXFOLIATION [None]
  - UNEVALUABLE EVENT [None]
  - WEIGHT INCREASED [None]
